FAERS Safety Report 8261100-1 (Version None)
Quarter: 2012Q2

REPORT INFORMATION
  Report Type: 
  Country: None (occurrence: None)
  Receive Date: 20120405
  Receipt Date: 20120329
  Transmission Date: 20120825
  Serious: Yes (Hospitalization)
  Sender: FDA-Public Use
  Company Number: PHEH2012US006966

PATIENT
  Sex: Female

DRUGS (10)
  1. METOPROLOL TARTRATE [Concomitant]
     Dosage: 100 MG, UNK
  2. PLAVIX [Concomitant]
     Dosage: 75 MG, UNK
  3. OMEPRAZOLE [Concomitant]
     Dosage: 20 MG, UNK
  4. AVAPRO [Concomitant]
     Dosage: 150 UKN, UNK
  5. CLONOPIN [Concomitant]
     Dosage: 0.5 MG, UNK
  6. AMAMITRITYLINE HCL [Concomitant]
     Dosage: 25 MG, UNK
  7. TEKTURNA [Suspect]
     Dosage: 150 MG, UNK
  8. LEVOTHYROXINE SODIUM [Concomitant]
     Dosage: 0.075 MG, UNK
  9. CRESTOR [Concomitant]
     Dosage: 5 MG, UNK
  10. AMLODIPINE [Concomitant]
     Dosage: 10 MG, UNK

REACTIONS (2)
  - TRIGEMINAL NEURALGIA [None]
  - LIMB DISCOMFORT [None]
